FAERS Safety Report 24339368 (Version 1)
Quarter: 2024Q3

REPORT INFORMATION
  Report Type: Report from Study
  Country: IN (occurrence: IN)
  Receive Date: 20240919
  Receipt Date: 20240919
  Transmission Date: 20241017
  Serious: Yes (Other)
  Sender: ROCHE
  Company Number: IN-002147023-NVSC2024IN185044

PATIENT
  Age: 87 Year
  Sex: Male
  Weight: 58 kg

DRUGS (2)
  1. RANIBIZUMAB [Suspect]
     Active Substance: RANIBIZUMAB
     Indication: Diabetic retinal oedema
     Dosage: 0.05 MG, QMO
     Route: 050
     Dates: start: 20220430, end: 20240902
  2. RANIBIZUMAB [Suspect]
     Active Substance: RANIBIZUMAB
     Indication: Diabetic retinopathy

REACTIONS (4)
  - Vitreous detachment [Unknown]
  - Dry eye [Unknown]
  - Visual impairment [Unknown]
  - Pigment dispersion syndrome [Unknown]

NARRATIVE: CASE EVENT DATE: 20220430
